FAERS Safety Report 4524028-6 (Version None)
Quarter: 2004Q4

REPORT INFORMATION
  Report Type: 
  Country: None (occurrence: None)
  Receive Date: 20041209
  Receipt Date: 20041201
  Transmission Date: 20050328
  Serious: Yes (Hospitalization)
  Sender: FDA-Public Use
  Company Number: THQ2004A01013

PATIENT
  Age: 61 Year
  Sex: Female

DRUGS (6)
  1. ACTOS [Suspect]
     Indication: DIABETES MELLITUS NON-INSULIN-DEPENDENT
     Dosage: 15 MG PER ORAL
     Route: 048
     Dates: start: 20040310
  2. METFORMIN HCL [Suspect]
     Indication: DIABETES MELLITUS NON-INSULIN-DEPENDENT
     Dosage: 425 MG (1 D), PER ORAL
     Route: 048
     Dates: start: 20040310
  3. LIPITOR [Concomitant]
  4. ACCURETIC [Concomitant]
  5. LOBIVON (NEBIVOLOL HYDROCHLORIDE) [Concomitant]
  6. PAROXETINE HCL [Concomitant]

REACTIONS (4)
  - BLOOD CHOLESTEROL INCREASED [None]
  - BLOOD GLUCOSE INCREASED [None]
  - COLORECTAL CANCER [None]
  - LOW DENSITY LIPOPROTEIN INCREASED [None]
